FAERS Safety Report 18162190 (Version 1)
Quarter: 2020Q3

REPORT INFORMATION
  Report Type: Spontaneous
  Country: SI (occurrence: SI)
  Receive Date: 20200818
  Receipt Date: 20200818
  Transmission Date: 20201103
  Serious: Yes (Hospitalization)
  Sender: FDA-Public Use
  Company Number: SI-ACCORD-195788

PATIENT
  Age: 78 Year
  Sex: Male
  Weight: 77 kg

DRUGS (13)
  1. GLICLADA [Concomitant]
     Active Substance: GLICLAZIDE
     Dosage: STRENGTH?60 MG, 2TBL IN THE MORNING
  2. EDEMID [Concomitant]
     Active Substance: FUROSEMIDE
     Dosage: STRENGTH?40 MG, EVERY 2 DAY
  3. FOLACIN [Concomitant]
     Dosage: STRENGTH?5 MG,2TBL/WEEK
  4. PLIVIT D3 [Concomitant]
     Active Substance: CHOLECALCIFEROL
  5. BYOL [Concomitant]
     Active Substance: BISOPROLOL
     Dosage: STRENGTH?2,5 MG
  6. ACETYLSALICYLIC ACID [Concomitant]
     Active Substance: ASPIRIN
     Dosage: STRENGTH?100 MG
  7. METHOTREXATE. [Suspect]
     Active Substance: METHOTREXATE
     Indication: RHEUMATOID ARTHRITIS
     Dosage: 10MG+5MG/WEEK
     Route: 048
  8. ANALGIN [Concomitant]
     Dosage: STRENGTH?500 MG
  9. SANVAL [Concomitant]
     Active Substance: ZOLPIDEM TARTRATE
     Dosage: STRENGTH?10 MG,IN THE EVENING
  10. RANEXA [Concomitant]
     Active Substance: RANOLAZINE
     Dosage: STRENGTH?375 MG
  11. NOLPAZA [Concomitant]
     Active Substance: PANTOPRAZOLE SODIUM
     Dosage: STRENGTH? 40 MG,2X1 TBL UNTIL MID?AUGUST, THEN 1/DAY
  12. TADOL [Concomitant]
     Active Substance: TRAMADOL HYDROCHLORIDE
     Dosage: STRENGTH?50 MG, 1X1
  13. AGLURAB [Concomitant]
     Active Substance: METFORMIN HYDROCHLORIDE
     Dosage: STRENGTH?1000 MG

REACTIONS (3)
  - Oral mucosa erosion [Not Recovered/Not Resolved]
  - Pancytopenia [Unknown]
  - Hepatotoxicity [Not Recovered/Not Resolved]
